FAERS Safety Report 10385353 (Version 1)
Quarter: 2014Q1

REPORT INFORMATION
  Report Type: Spontaneous
  Country: US (occurrence: None)
  Receive Date: 20140306
  Receipt Date: 20140306
  Transmission Date: 20141002
  Serious: Yes (Other)
  Sender: FDA-Public Use
  Company Number: 163-21880-13032995

PATIENT
  Age: 79 Year
  Sex: Female

DRUGS (9)
  1. REVLIMID (LENALIDOMIDE) (25 MILLIGRAM, CAPSULES) [Suspect]
     Indication: PLASMA CELL MYELOMA
     Route: 048
     Dates: start: 20121214
  2. BABY ASPIRIN (ACETYLSALICYLIC ACID) [Concomitant]
  3. DEXAMETHASONE [Concomitant]
  4. FENTANYL [Concomitant]
  5. L-THYROXINE SODIUM (LEVOTHYROXINE SODIUM) [Concomitant]
  6. MEGESTROL ACETATE [Concomitant]
  7. OMEPRAZOLE [Concomitant]
  8. OXYCODONE-ACETAMINOPHEN (OXYCOCET) [Concomitant]
  9. STOOL SOFTENER (DOCUSATE SODIUM) [Concomitant]

REACTIONS (1)
  - Adverse event [None]
